FAERS Safety Report 6121184-3 (Version None)
Quarter: 2009Q1

REPORT INFORMATION
  Report Type: 
  Country: None (occurrence: None)
  Receive Date: 20090312
  Receipt Date: 20090225
  Transmission Date: 20090719
  Serious: Yes (Other)
  Sender: FDA-Public Use
  Company Number: DSJ-2009-02434

PATIENT
  Age: 58 Year
  Sex: Male

DRUGS (8)
  1. OLMETEC (OLMESARTAN MEDOXOMIL) [Suspect]
     Indication: HYPERTENSION
     Dosage: 20 MG, PER ORAL
     Route: 048
  2. URIEF [Suspect]
     Indication: BENIGN PROSTATIC HYPERPLASIA
     Dosage: 8 MG, PER ORAL
     Route: 048
     Dates: start: 20090111, end: 20090221
  3. ACTOS (PIOCLITAZONE) (PIOGLITAZONE) [Concomitant]
  4. OMEPRAL (OMEPRAZOLE) (OMEPRAZOLE) [Concomitant]
  5. LIPIDIL (FENOFIBRATE) (FENOFIBRATE) [Concomitant]
  6. AMARYL [Concomitant]
  7. INDAPAMIDE [Concomitant]
  8. SEIBULE (MIGLITOL) (MIGLITOL) [Concomitant]

REACTIONS (2)
  - BLOOD CREATININE INCREASED [None]
  - SHOCK [None]
